FAERS Safety Report 18437723 (Version 7)
Quarter: 2020Q4

REPORT INFORMATION
  Report Type: Spontaneous
  Country: US (occurrence: US)
  Receive Date: 20201028
  Receipt Date: 20201216
  Transmission Date: 20210114
  Serious: No
  Sender: FDA-Public Use
  Company Number: US-PFIZER INC-2020411820

PATIENT
  Age: 9 Year
  Sex: Female
  Weight: 42.64 kg

DRUGS (5)
  1. GENOTROPIN [Suspect]
     Active Substance: SOMATROPIN
     Dosage: 0.5 MG, DAILY
     Dates: start: 20191119
  2. GENOTROPIN [Suspect]
     Active Substance: SOMATROPIN
     Dosage: UNK
  3. GENOTROPIN [Suspect]
     Active Substance: SOMATROPIN
     Dosage: 0.7 MG, DAILY
     Dates: start: 20191116
  4. GENOTROPIN [Suspect]
     Active Substance: SOMATROPIN
     Dosage: UNK (REPORTED AS 0.7 WITH UNSPECIFIED UNIT), EVERY NIGHT
  5. GENOTROPIN [Suspect]
     Active Substance: SOMATROPIN
     Indication: SHORT STATURE
     Dosage: UNK (REPORTED AS 0.5 WITH UNSPECIFIED UNIT), ONCE A DAY
     Dates: start: 201909

REACTIONS (5)
  - Drug dose omission by device [Unknown]
  - Device breakage [Unknown]
  - Device leakage [Unknown]
  - Device use error [Unknown]
  - Device dispensing error [Unknown]
